FAERS Safety Report 5195082-6 (Version None)
Quarter: 2006Q4

REPORT INFORMATION
  Report Type: 
  Country: None (occurrence: None)
  Receive Date: 20061229
  Receipt Date: 20061019
  Transmission Date: 20070319
  Serious: Yes (Hospitalization, Other)
  Sender: FDA-Public Use
  Company Number: US-SHR-US-2006-032128

PATIENT
  Age: 49 Year
  Sex: Female
  Weight: 92.517 kg

DRUGS (14)
  1. BETASERON [Suspect]
     Indication: SECONDARY PROGRESSIVE MULTIPLE SCLEROSIS
     Dosage: 8 MIU, EVERY 2D
     Route: 058
     Dates: start: 20020208
  2. TAGAMET [Concomitant]
     Dates: start: 20060101
  3. TRAMADOL HCL [Concomitant]
     Dosage: 1 MG/10MG
     Route: 048
     Dates: start: 20030101
  4. ALLEGRA-D 12 HOUR [Concomitant]
     Indication: MULTIPLE ALLERGIES
     Dosage: 10 MG/D, UNK
     Route: 048
     Dates: start: 19950101
  5. SONATA [Concomitant]
     Dosage: 10 MG, AS REQ'D
     Route: 048
     Dates: start: 20030101
  6. LEXAPRO [Concomitant]
     Indication: DEPRESSION
     Dosage: 20 MG/D, BED T.
     Route: 048
     Dates: start: 20050101
  7. VITAMIN E [Concomitant]
     Dosage: 400 IU, 1X/DAY
  8. CORAL CALCIUM [Concomitant]
     Dosage: 1000 MG/D, UNK
  9. VITAMIN D [Concomitant]
     Dosage: UNK, 1X/DAY
  10. MAGNESIUM [Concomitant]
     Dosage: UNK, 1X/DAY
  11. VITAMIN B KOMPLEX [Concomitant]
     Dosage: UNK, 1X/DAY
  12. HYDROCODONE W/APAP [Concomitant]
     Dosage: 10MG/325MG,.5-1 TAB,4X/D ASREQ'D
     Route: 048
  13. TYLENOL (CAPLET) [Concomitant]
     Indication: PAIN
  14. MOTRIN [Concomitant]
     Indication: PAIN

REACTIONS (5)
  - CHOLELITHIASIS [None]
  - INJECTION SITE ERYTHEMA [None]
  - INJECTION SITE PAIN [None]
  - MULTIPLE SCLEROSIS [None]
  - NEPHROLITHIASIS [None]
